FAERS Safety Report 6800918-6 (Version None)
Quarter: 2010Q2

REPORT INFORMATION
  Report Type: 
  Country: None (occurrence: None)
  Receive Date: 20100629
  Receipt Date: 20100616
  Transmission Date: 20101027
  Serious: Yes (Hospitalization, Other)
  Sender: FDA-Public Use
  Company Number: PHHY2010BR39464

PATIENT
  Sex: Male

DRUGS (1)
  1. TASIGNA [Suspect]
     Indication: CHRONIC MYELOID LEUKAEMIA
     Dosage: 2 CAPSULES IN THE MORNING AND 2 CAPSULES AT NIGHT
     Route: 048
     Dates: end: 20100527

REACTIONS (8)
  - CIRCUMSTANCE OR INFORMATION CAPABLE OF LEADING TO MEDICATION ERROR [None]
  - CONDITION AGGRAVATED [None]
  - DELIRIUM FEBRILE [None]
  - DYSPHAGIA [None]
  - GASTROINTESTINAL INFECTION [None]
  - INTESTINAL OBSTRUCTION [None]
  - INTESTINAL OPERATION [None]
  - MALIGNANT NEOPLASM PROGRESSION [None]
